FAERS Safety Report 5069326-5 (Version None)
Quarter: 2006Q3

REPORT INFORMATION
  Report Type: 
  Country: None (occurrence: None)
  Receive Date: 20060802
  Receipt Date: 20060802
  Transmission Date: 20061208
  Serious: No
  Sender: FDA-Public Use
  Company Number: None

PATIENT
  Sex: Female
  Weight: 60 kg

DRUGS (2)
  1. PREMPRO [Suspect]
     Indication: HORMONE REPLACEMENT THERAPY
     Dosage: ONE TAB PO  DAILY
     Route: 048
  2. PREMPRO [Suspect]
     Indication: MENOPAUSE
     Dosage: ONE TAB PO  DAILY
     Route: 048

REACTIONS (1)
  - BLOOD PRESSURE INCREASED [None]
